FAERS Safety Report 6426760-6 (Version None)
Quarter: 2009Q4

REPORT INFORMATION
  Report Type: 
  Country: None (occurrence: None)
  Receive Date: 20091103
  Receipt Date: 20091103
  Transmission Date: 20100525
  Serious: No
  Sender: FDA-Public Use
  Company Number: None

PATIENT
  Age: 79 Year
  Sex: Male
  Weight: 83 kg

DRUGS (2)
  1. CISATRACURIUM BESYLATE [Suspect]
     Indication: SURGERY
     Dosage: 14 MG ONCE IV
     Route: 042
     Dates: start: 20090827, end: 20090827
  2. PROPOFOL [Suspect]

REACTIONS (2)
  - ANAESTHETIC COMPLICATION [None]
  - MUSCLE TWITCHING [None]
